FAERS Safety Report 7201591-8 (Version None)
Quarter: 2011Q1

REPORT INFORMATION
  Report Type: 
  Country: None (occurrence: None)
  Receive Date: 20101216
  Receipt Date: 20101213
  Transmission Date: 20110831
  Serious: Yes (Other)
  Sender: FDA-Public Use
  Company Number: CA-1184245

PATIENT
  Age: 65 Year
  Sex: Female

DRUGS (3)
  1. CLOMIPRAMINE HYDROCHLORIDE [Suspect]
  2. CLONAZEPAM [Concomitant]
  3. TOBRADEX [Suspect]
     Indication: FURUNCLE
     Dosage: 2-3 TIMES DAILY; OPHTHALMIC
     Route: 047
     Dates: start: 20101027, end: 20101102

REACTIONS (2)
  - VISION BLURRED [None]
  - VISUAL ACUITY REDUCED [None]
